FAERS Safety Report 9640403 (Version 1)
Quarter: 2013Q4

REPORT INFORMATION
  Report Type: Spontaneous
  Country: BR (occurrence: BR)
  Receive Date: 20131023
  Receipt Date: 20131023
  Transmission Date: 20140711
  Serious: Yes (Other)
  Sender: FDA-Public Use
  Company Number: BR-ASTRAZENECA-2013SE77727

PATIENT
  Sex: 0

DRUGS (1)
  1. BRILINTA [Suspect]
     Dosage: MACERATED TICAGRELOR
     Route: 045

REACTIONS (2)
  - Thrombosis in device [Unknown]
  - Intentional drug misuse [Unknown]
